FAERS Safety Report 25883329 (Version 1)
Quarter: 2025Q4

REPORT INFORMATION
  Report Type: Report from Study
  Country: US (occurrence: US)
  Receive Date: 20251006
  Receipt Date: 20251006
  Transmission Date: 20260117
  Serious: Yes (Hospitalization)
  Sender: ALEXION PHARMACEUTICALS
  Company Number: US-ASTRAZENECA-202509USA026846US

PATIENT
  Sex: Female

DRUGS (1)
  1. ANIFROLUMAB [Suspect]
     Active Substance: ANIFROLUMAB
     Indication: Systemic lupus erythematosus
     Dosage: 300 MILLIGRAM, Q4W

REACTIONS (5)
  - Graves^ disease [Unknown]
  - Feeding disorder [Unknown]
  - Weight decreased [Unknown]
  - Product dose omission issue [Unknown]
  - Illness [Not Recovered/Not Resolved]
